FAERS Safety Report 6277636-9 (Version None)
Quarter: 2009Q3

REPORT INFORMATION
  Report Type: 
  Country: None (occurrence: None)
  Receive Date: 20090722
  Receipt Date: 20090715
  Transmission Date: 20100115
  Serious: Yes (Other)
  Sender: FDA-Public Use
  Company Number: US-GENENTECH-280804

PATIENT
  Age: 50 Year
  Sex: Male
  Weight: 71 kg

DRUGS (13)
  1. BEVACIZUMAB [Suspect]
     Indication: RENAL CELL CARCINOMA
     Dosage: 10 MG/KG, DAYS 1+15 OF A 28 DAY CYCLE
     Route: 042
     Dates: start: 20080715, end: 20090330
  2. TEMSIROLIMUS [Suspect]
     Indication: RENAL CELL CARCINOMA
     Dosage: 25 MG, DAYS 1, 8, 15 AND 22 OF A 28 DAY CYCLE
     Route: 042
     Dates: start: 20080715
  3. TEMSIROLIMUS [Suspect]
     Dosage: 15 MG, 1/WEEK
  4. COMPAZINE [Concomitant]
     Indication: DRUG USE FOR UNKNOWN INDICATION
  5. ATIVAN [Concomitant]
     Indication: DRUG USE FOR UNKNOWN INDICATION
  6. LISINOPRIL [Concomitant]
     Indication: DRUG USE FOR UNKNOWN INDICATION
  7. DILAUDID [Concomitant]
     Indication: DRUG USE FOR UNKNOWN INDICATION
  8. AMOXICILLIN [Concomitant]
     Indication: DRUG USE FOR UNKNOWN INDICATION
  9. PAROXETINE HCL [Concomitant]
     Indication: DRUG USE FOR UNKNOWN INDICATION
  10. MAGIC MOUTHWASH (BENADRYL, CARAFATE, XYLOCAIN [Concomitant]
     Indication: DRUG USE FOR UNKNOWN INDICATION
  11. VICODIN [Concomitant]
     Indication: DRUG USE FOR UNKNOWN INDICATION
  12. NIASPAN [Concomitant]
     Indication: DRUG USE FOR UNKNOWN INDICATION
  13. ADVAIR HFA [Concomitant]
     Indication: DRUG USE FOR UNKNOWN INDICATION

REACTIONS (1)
  - OSTEONECROSIS [None]
